FAERS Safety Report 10369463 (Version 2)
Quarter: 2014Q3

REPORT INFORMATION
  Report Type: Spontaneous
  Country: DE (occurrence: DE)
  Receive Date: 20140807
  Receipt Date: 20140901
  Transmission Date: 20150326
  Serious: Yes (Life-Threatening, Hospitalization, Other)
  Sender: FDA-Public Use
  Company Number: DE-TAKEDA-2014TUS007145

PATIENT
  Age: 74 Year
  Sex: Male

DRUGS (5)
  1. FURORESE                           /00032601/ [Concomitant]
     Dosage: UNK
  2. RAMIPRIL. [Concomitant]
     Active Substance: RAMIPRIL
     Dosage: UNK
  3. ALDACTONE [Concomitant]
     Active Substance: SPIRONOLACTONE
     Dosage: UNK
  4. BISOPROLOL [Concomitant]
     Active Substance: BISOPROLOL
     Dosage: UNK
  5. ADENURIC [Suspect]
     Active Substance: FEBUXOSTAT
     Indication: PRODUCT USED FOR UNKNOWN INDICATION
     Dosage: UNK
     Route: 048
     Dates: start: 201401, end: 20140804

REACTIONS (6)
  - Chromaturia [Not Recovered/Not Resolved]
  - Liver function test abnormal [Not Recovered/Not Resolved]
  - Faeces discoloured [Not Recovered/Not Resolved]
  - Metastases to liver [Not Recovered/Not Resolved]
  - Blood bilirubin increased [Not Recovered/Not Resolved]
  - Jaundice [Not Recovered/Not Resolved]

NARRATIVE: CASE EVENT DATE: 201407
